FAERS Safety Report 18654605 (Version 2)
Quarter: 2021Q1

REPORT INFORMATION
  Report Type: Spontaneous
  Country: US (occurrence: US)
  Receive Date: 20201223
  Receipt Date: 20210303
  Transmission Date: 20210419
  Serious: No
  Sender: FDA-Public Use
  Company Number: US-BLUEPRINT MEDICINES CORPORATION-SP-US-2020-001340

PATIENT
  Sex: Male

DRUGS (1)
  1. GAVRETO [Suspect]
     Active Substance: PRALSETINIB
     Indication: LUNG NEOPLASM MALIGNANT
     Route: 048
     Dates: start: 20200928

REACTIONS (2)
  - Productive cough [Unknown]
  - Increased upper airway secretion [Unknown]
